FAERS Safety Report 12961089 (Version 8)
Quarter: 2017Q2

REPORT INFORMATION
  Report Type: Report from Study
  Country: BR (occurrence: BR)
  Receive Date: 20161121
  Receipt Date: 20170606
  Transmission Date: 20170830
  Serious: Yes (Death, Life-Threatening, Hospitalization)
  Sender: FDA-Public Use
  Company Number: BR-PFIZER INC-2016532312

PATIENT
  Age: 76 Year
  Sex: Male
  Weight: 106.6 kg

DRUGS (11)
  1. BEVACIZUMAB [Suspect]
     Active Substance: BEVACIZUMAB
     Indication: NON-SMALL CELL LUNG CANCER STAGE IV
     Dosage: 1615.5 MG, DAY 1 OF EACH OF THE 3 WEEK (21 DAY)
     Route: 042
     Dates: start: 20160915, end: 20161026
  2. SELOZOK [Concomitant]
     Active Substance: METOPROLOL SUCCINATE
     Indication: CORONARY ARTERY DISEASE
     Dosage: 50 MG, EVERY DAY
     Route: 048
     Dates: start: 199603, end: 20161113
  3. PURAN [Concomitant]
     Active Substance: LEVOTHYROXINE SODIUM
     Indication: HYPOTHYROIDISM
     Dosage: 150 MG, DAILY
     Route: 048
     Dates: start: 200609, end: 20161123
  4. ALDACTONE [Concomitant]
     Active Substance: SPIRONOLACTONE
     Indication: CORONARY ARTERY DISEASE
     Dosage: 25 MG, EVERY DAY
     Route: 048
     Dates: start: 199603, end: 20161115
  5. AMITRIPTYLINE [Concomitant]
     Active Substance: AMITRIPTYLINE
     Indication: ANXIETY
     Dosage: 12.5 MG, DAILY
     Route: 048
     Dates: start: 20160801, end: 20161113
  6. PACLITAXEL. [Suspect]
     Active Substance: PACLITAXEL
     Indication: NON-SMALL CELL LUNG CANCER STAGE IV
     Dosage: 367.15 MG, DAY 1 OF EACH OF THE 3 WEEK (21 DAY)
     Route: 042
     Dates: start: 20160915, end: 20161026
  7. CARBOPLATIN. [Suspect]
     Active Substance: CARBOPLATIN
     Indication: NON-SMALL CELL LUNG CANCER STAGE IV
     Dosage: 598.8 MG, DAY 1 OF EACH OF THE 3 WEEK (21 DAY)
     Route: 042
     Dates: start: 20160915, end: 20161026
  8. EZETIMIBE. [Concomitant]
     Active Substance: EZETIMIBE
     Indication: CORONARY ARTERY DISEASE
     Dosage: 10 MG, DAILY
     Route: 048
     Dates: start: 199603, end: 20161113
  9. PROPATYLNITRATE [Concomitant]
     Active Substance: PROPATYL NITRATE
     Indication: CORONARY ARTERY DISEASE
     Dosage: 100 MG, EVERY DAY
     Route: 048
     Dates: start: 199603, end: 20161113
  10. SIMVASTATIN. [Concomitant]
     Active Substance: SIMVASTATIN
     Indication: CORONARY ARTERY DISEASE
     Dosage: 20 MG, DAILY
     Route: 048
     Dates: start: 199603, end: 20161122
  11. ACETYLSALICYLIC ACID [Concomitant]
     Active Substance: ASPIRIN
     Indication: CORONARY ARTERY DISEASE
     Dosage: 100 MG, EVERY DAY
     Route: 048
     Dates: start: 199603, end: 20161121

REACTIONS (1)
  - Sepsis [Not Recovered/Not Resolved]

NARRATIVE: CASE EVENT DATE: 20161114
